FAERS Safety Report 10558961 (Version 1)
Quarter: 2014Q4

REPORT INFORMATION
  Report Type: Report from Study
  Country: US (occurrence: US)
  Receive Date: 20141102
  Receipt Date: 20141102
  Transmission Date: 20150529
  Serious: Yes (Hospitalization)
  Sender: FDA-Public Use
  Company Number: US-BRISTOL-MYERS SQUIBB COMPANY-21534649

PATIENT
  Age: 54 Year
  Sex: Male
  Weight: 60.5 kg

DRUGS (1)
  1. CETUXIMAB [Suspect]
     Active Substance: CETUXIMAB
     Indication: OROPHARYNGEAL CANCER

REACTIONS (4)
  - Neck pain [Not Recovered/Not Resolved]
  - Embolism [Not Recovered/Not Resolved]
  - Pneumonitis [Not Recovered/Not Resolved]
  - Lung infection [Not Recovered/Not Resolved]

NARRATIVE: CASE EVENT DATE: 20140611
